FAERS Safety Report 15491563 (Version 1)
Quarter: 2018Q4

REPORT INFORMATION
  Report Type: Spontaneous
  Country: US (occurrence: US)
  Receive Date: 20181012
  Receipt Date: 20181012
  Transmission Date: 20190205
  Serious: No
  Sender: FDA-Public Use
  Company Number: US-SHIRE-US201839463

PATIENT
  Age: 62 Year
  Sex: Female
  Weight: 54.42 kg

DRUGS (1)
  1. XIIDRA [Suspect]
     Active Substance: LIFITEGRAST
     Indication: PRODUCT USED FOR UNKNOWN INDICATION
     Dosage: 1 GTT, 2X/DAY:BID
     Route: 047
     Dates: end: 201806

REACTIONS (3)
  - Instillation site pain [Recovered/Resolved]
  - Unevaluable event [Unknown]
  - Instillation site erythema [Recovered/Resolved]

NARRATIVE: CASE EVENT DATE: 201806
